FAERS Safety Report 26171961 (Version 1)
Quarter: 2025Q4

REPORT INFORMATION
  Report Type: Spontaneous
  Country: JP (occurrence: JP)
  Receive Date: 20251217
  Receipt Date: 20251217
  Transmission Date: 20260117
  Serious: Yes (Death, Hospitalization, Other)
  Sender: SANDOZ
  Company Number: JP-SANDOZ INC.-SDZ2025JP095220

PATIENT
  Age: 75 Year
  Sex: Male

DRUGS (3)
  1. DOCETAXEL [Suspect]
     Active Substance: DOCETAXEL
     Indication: Hormone-dependent prostate cancer
     Dosage: 70 MG/M2
     Route: 065
  2. DAROLUTAMIDE [Suspect]
     Active Substance: DAROLUTAMIDE
     Indication: Hormone-dependent prostate cancer
     Dosage: UNK
     Route: 065
  3. RELUGOLIX [Suspect]
     Active Substance: RELUGOLIX
     Indication: Hormone-dependent prostate cancer
     Dosage: UNK
     Route: 048

REACTIONS (1)
  - Pneumocystis jirovecii pneumonia [Fatal]
